FAERS Safety Report 7269596-9 (Version None)
Quarter: 2011Q1

REPORT INFORMATION
  Report Type: 
  Country: None (occurrence: None)
  Receive Date: 20110202
  Receipt Date: 20110120
  Transmission Date: 20110831
  Serious: Yes (Hospitalization)
  Sender: FDA-Public Use
  Company Number: GB-ELI_LILLY_AND_COMPANY-GB201101007067

PATIENT
  Sex: Female
  Weight: 62.7 kg

DRUGS (11)
  1. METOPROLOL [Concomitant]
     Indication: HYPERTENSION
     Dates: start: 19740101
  2. BENDROFLUMETHIAZIDE [Concomitant]
     Indication: HYPERTENSION
     Dates: start: 20041229
  3. CANDESARTAN [Concomitant]
     Indication: PROPHYLAXIS
     Dates: start: 20101210
  4. HYPROMELLOSE [Concomitant]
     Indication: PROPHYLAXIS
     Dates: start: 19950803
  5. PRASUGREL HYDROCHLORIDE [Suspect]
     Indication: ACUTE CORONARY SYNDROME
     Dosage: UNK, UNK
     Route: 048
     Dates: start: 20101216, end: 20110126
  6. LANSOPRAZOLE [Concomitant]
     Dates: start: 20091007
  7. GLYCERYL TRINITRATE [Concomitant]
     Indication: PROPHYLAXIS
     Dates: start: 19951214
  8. PARACETAMOL [Concomitant]
     Indication: PROPHYLAXIS
  9. ENOXAPARIN [Concomitant]
     Dosage: 1 MG/KG, 2/D
  10. AMLODIPINE [Concomitant]
     Indication: PROPHYLAXIS
     Dates: start: 20101210
  11. ATORVASTATIN [Concomitant]
     Indication: HYPERLIPIDAEMIA
     Dates: start: 20011023

REACTIONS (2)
  - DYSPEPSIA [None]
  - RECTAL HAEMORRHAGE [None]
